FAERS Safety Report 6479488-0 (Version None)
Quarter: 2009Q4

REPORT INFORMATION
  Report Type: 
  Country: None (occurrence: None)
  Receive Date: 20091208
  Receipt Date: 20091127
  Transmission Date: 20100525
  Serious: Yes (Death, Hospitalization, Other)
  Sender: FDA-Public Use
  Company Number: GB-RANBAXY-2009RR-29371

PATIENT
  Age: 71 Year
  Sex: Female

DRUGS (1)
  1. AMOXICILLIN [Suspect]
     Indication: UPPER RESPIRATORY TRACT INFECTION
     Dosage: UNK

REACTIONS (15)
  - ABDOMINAL DISTENSION [None]
  - BLISTER [None]
  - C-REACTIVE PROTEIN INCREASED [None]
  - DIARRHOEA [None]
  - EROSIVE OESOPHAGITIS [None]
  - EYE PAIN [None]
  - GASTRITIS EROSIVE [None]
  - GENITAL EROSION [None]
  - HAEMATOCHEZIA [None]
  - HYPOTHERMIA [None]
  - LIP EROSION [None]
  - STEVENS-JOHNSON SYNDROME [None]
  - STREPTOCOCCAL INFECTION [None]
  - TOXIC EPIDERMAL NECROLYSIS [None]
  - WHITE BLOOD CELL COUNT INCREASED [None]
